FAERS Safety Report 4422394-3 (Version None)
Quarter: 2004Q3

REPORT INFORMATION
  Report Type: 
  Country: None (occurrence: None)
  Receive Date: 20040806
  Receipt Date: 20040723
  Transmission Date: 20050211
  Serious: Yes (Death, Other)
  Sender: FDA-Public Use
  Company Number: 2004225970US

PATIENT
  Age: 66 Year
  Sex: Female

DRUGS (1)
  1. DOXORUBICIN PFS (DOXORUBICIN HYDROCHLORIDE) SOLUTION, STERILE [Suspect]

REACTIONS (3)
  - CEREBRAL HAEMORRHAGE [None]
  - PLATELET COUNT ABNORMAL [None]
  - POST PROCEDURAL COMPLICATION [None]
